FAERS Safety Report 5314901-3 (Version None)
Quarter: 2007Q2

REPORT INFORMATION
  Report Type: 
  Country: None (occurrence: None)
  Receive Date: 20070426
  Receipt Date: 20070423
  Transmission Date: 20071010
  Serious: Yes (Other)
  Sender: FDA-Public Use
  Company Number: 2007-GWUS-0185

PATIENT
  Age: 37 Year
  Sex: Female

DRUGS (6)
  1. ALDARA [Suspect]
     Indication: ANOGENITAL WARTS
     Dosage: APPLICATION - 3XW - TOPICAL
     Route: 061
     Dates: start: 20070308
  2. TOPAMAX [Concomitant]
  3. LAMICTAL [Concomitant]
  4. CYMBALTA [Concomitant]
  5. AMBIEN [Concomitant]
  6. CLONAZEPAM [Concomitant]

REACTIONS (4)
  - AGGRESSION [None]
  - AGITATION [None]
  - DEPRESSION [None]
  - SUICIDAL IDEATION [None]
